FAERS Safety Report 22033628 (Version 1)
Quarter: 2023Q1

REPORT INFORMATION
  Report Type: Spontaneous
  Country: US (occurrence: None)
  Receive Date: 20230222
  Receipt Date: 20230222
  Transmission Date: 20230418
  Serious: Yes (Hospitalization)
  Sender: FDA-Public Use
  Company Number: None

PATIENT
  Age: 3 Year
  Sex: Male

DRUGS (1)
  1. VIGABATRIN [Suspect]
     Active Substance: VIGABATRIN
     Indication: Focal dyscognitive seizures
     Dosage: FREQUENCY : TWICE A DAY;?
     Route: 048
     Dates: start: 20220304

REACTIONS (2)
  - Seizure [None]
  - Aspiration [None]

NARRATIVE: CASE EVENT DATE: 20230201
